FAERS Safety Report 7475482-1 (Version None)
Quarter: 2011Q2

REPORT INFORMATION
  Report Type: 
  Country: None (occurrence: None)
  Receive Date: 20110512
  Receipt Date: 20110502
  Transmission Date: 20111010
  Serious: Yes (Other)
  Sender: FDA-Public Use
  Company Number: PHHY2011US33720

PATIENT
  Sex: Male

DRUGS (4)
  1. GLYBURIDE [Concomitant]
     Indication: TYPE 2 DIABETES MELLITUS
     Dosage: 5 MG, BID
  2. GILENYA [Suspect]
     Indication: MULTIPLE SCLEROSIS
     Dosage: 0.5 MG, QD
     Route: 048
     Dates: start: 20110403
  3. LANTUS [Concomitant]
     Indication: TYPE 2 DIABETES MELLITUS
     Dosage: 30 U, QD
  4. LOTREL [Concomitant]
     Indication: HYPERTENSION
     Dosage: 10/20 QD

REACTIONS (4)
  - BLOOD GLUCOSE INCREASED [None]
  - MEDICATION ERROR [None]
  - COUGH [None]
  - BLOOD PRESSURE INCREASED [None]
